FAERS Safety Report 9144929 (Version 1)
Quarter: 2013Q1

REPORT INFORMATION
  Report Type: Spontaneous
  Country: US (occurrence: US)
  Receive Date: 20130307
  Receipt Date: 20130307
  Transmission Date: 20140127
  Serious: Yes (Hospitalization)
  Sender: FDA-Public Use
  Company Number: US-BIOGENIDEC-2013BI014664

PATIENT
  Age: 26 Year
  Sex: Male

DRUGS (1)
  1. AVONEX [Suspect]
     Indication: MULTIPLE SCLEROSIS
     Route: 030
     Dates: start: 20100405, end: 20100901

REACTIONS (10)
  - Dehydration [Recovered/Resolved]
  - Pyrexia [Recovered/Resolved]
  - Ataxia [Recovered/Resolved]
  - Delirium [Recovered/Resolved]
  - Diabetes mellitus [Unknown]
  - Multiple sclerosis [Unknown]
  - Stress [Recovered/Resolved]
  - Anxiety [Recovered/Resolved]
  - Depression [Recovered/Resolved]
  - Suicidal ideation [Recovered/Resolved]
